FAERS Safety Report 6057020-3 (Version None)
Quarter: 2009Q1

REPORT INFORMATION
  Report Type: 
  Country: None (occurrence: None)
  Receive Date: 20090127
  Receipt Date: 20090127
  Transmission Date: 20090719
  Serious: Yes (Hospitalization)
  Sender: FDA-Public Use
  Company Number: None

PATIENT
  Age: 21 Year
  Sex: Male
  Weight: 106.5953 kg

DRUGS (1)
  1. CYCLOBENZAPRINE [Suspect]
     Indication: SLEEP DISORDER
     Dosage: 10 MG 1 BEFORE BED PO
     Route: 048
     Dates: start: 20090119, end: 20090123

REACTIONS (1)
  - RASH [None]
